FAERS Safety Report 9224268 (Version 1)
Quarter: 2013Q1

REPORT INFORMATION
  Report Type: Spontaneous
  Country: US (occurrence: None)
  Receive Date: 20120914
  Receipt Date: 20120914
  Transmission Date: 20140127
  Serious: Yes (Other)
  Sender: FDA-Public Use
  Company Number: JPI-P-016663

PATIENT
  Age: 62 Year
  Sex: Female
  Weight: 68.04 kg

DRUGS (8)
  1. XYREM (500 MILLIGRAM/MILLILITERS, SOLUTION) (SODIUM OXYBATE) [Suspect]
     Indication: CATAPLEXY
     Dosage: 4.5 GM (2.25 GM, 2 IN 1 D), ORAL
     Route: 048
     Dates: start: 20110813, end: 2011
  2. DIOVAN (VALSARTAN) [Suspect]
     Indication: HYPERTENSION
     Dates: end: 20110825
  3. TRAVATAN (TRAVOPROST) [Concomitant]
  4. CITALOPRAM [Concomitant]
  5. ZYRTEC (CETRIZINE) [Concomitant]
  6. ZANTAC (RANITIDINE) [Concomitant]
  7. B12 SHOTS (VITAMIN B12) [Concomitant]
  8. VITAMIN D [Concomitant]

REACTIONS (8)
  - Blood pressure increased [None]
  - Condition aggravated [None]
  - Bruxism [None]
  - Swelling face [None]
  - Tongue injury [None]
  - Pneumonia [None]
  - Headache [None]
  - Libido decreased [None]
